FAERS Safety Report 24236618 (Version 1)
Quarter: 2024Q3

REPORT INFORMATION
  Report Type: Spontaneous
  Country: US (occurrence: US)
  Receive Date: 20240822
  Receipt Date: 20240822
  Transmission Date: 20241016
  Serious: Yes (Disabling)
  Sender: DR REDDYS
  Company Number: None

PATIENT
  Age: 13 Year
  Sex: Male

DRUGS (2)
  1. CLOZAPINE [Suspect]
     Active Substance: CLOZAPINE
     Indication: Schizophrenia
  2. CLOZAPINE [Suspect]
     Active Substance: CLOZAPINE
     Dosage: DOSE WAS GRADUALLY TITRATED UPWARD

REACTIONS (10)
  - Dysgraphia [Unknown]
  - Balance disorder [Unknown]
  - Feeding disorder [Unknown]
  - Tremor [Unknown]
  - Gait disturbance [Unknown]
  - Hyperphagia [Unknown]
  - Salivary hypersecretion [Unknown]
  - Constipation [Unknown]
  - Enuresis [Unknown]
  - Sedation [Unknown]
